FAERS Safety Report 15807539 (Version 1)
Quarter: 2019Q1

REPORT INFORMATION
  Report Type: Report from Study
  Country: BR (occurrence: BR)
  Receive Date: 20190110
  Receipt Date: 20190110
  Transmission Date: 20190417
  Serious: Yes (Hospitalization, Other)
  Sender: FDA-Public Use
  Company Number: PHHY2019BR002612

PATIENT
  Sex: Male
  Weight: 87 kg

DRUGS (1)
  1. SANDOSTATIN LAR DEPOT [Suspect]
     Active Substance: OCTREOTIDE ACETATE
     Indication: ACROMEGALY
     Dosage: 30 MG, UNK
     Route: 030
     Dates: start: 2014

REACTIONS (4)
  - Brain abscess [Recovering/Resolving]
  - Seizure [Recovering/Resolving]
  - Meningitis [Recovering/Resolving]
  - Brain neoplasm [Recovering/Resolving]
